FAERS Safety Report 14980932 (Version 1)
Quarter: 2018Q2

REPORT INFORMATION
  Report Type: Spontaneous
  Country: US (occurrence: US)
  Receive Date: 20180606
  Receipt Date: 20180606
  Transmission Date: 20180711
  Serious: No
  Sender: FDA-Public Use
  Company Number: US-PTC THERAPEUTICS, INC.-US-2018PTC000389

PATIENT

DRUGS (1)
  1. EMFLAZA [Suspect]
     Active Substance: DEFLAZACORT
     Indication: DUCHENNE MUSCULAR DYSTROPHY
     Dosage: 216 MG, EVERY SATURDAY AND SUNDAY
     Route: 048
     Dates: start: 20171223

REACTIONS (4)
  - Anxiety [Unknown]
  - Anger [Unknown]
  - Off label use [Unknown]
  - Mood altered [Unknown]

NARRATIVE: CASE EVENT DATE: 20180503
